FAERS Safety Report 9135478 (Version 3)
Quarter: 2016Q2

REPORT INFORMATION
  Report Type: Spontaneous
  Country: FR (occurrence: FR)
  Receive Date: 20130304
  Receipt Date: 20160617
  Transmission Date: 20160815
  Serious: Yes (Life-Threatening, Other)
  Sender: FDA-Public Use
  Company Number: FR-PFIZER INC-2013072723

PATIENT
  Age: 26 Year
  Sex: Female

DRUGS (4)
  1. CYTOTEC [Suspect]
     Active Substance: MISOPROSTOL
     Indication: RETAINED PRODUCTS OF CONCEPTION
     Dosage: 400 UG, 2X/DAY
     Route: 067
     Dates: start: 20121213, end: 20121213
  2. CYTOTEC [Suspect]
     Active Substance: MISOPROSTOL
     Indication: FOETAL DEATH
  3. MIFEGYNE [Suspect]
     Active Substance: MIFEPRISTONE
     Indication: EVACUATION OF RETAINED PRODUCTS OF CONCEPTION
     Dosage: 600 MG, 1X/DAY
     Route: 048
     Dates: start: 20121212, end: 20121212
  4. MIFEGYNE [Suspect]
     Active Substance: MIFEPRISTONE
     Indication: FOETAL DEATH

REACTIONS (6)
  - Amniotic cavity infection [Recovered/Resolved]
  - Partial seizures with secondary generalisation [Recovered/Resolved]
  - Incorrect route of drug administration [Unknown]
  - Product use issue [Unknown]
  - Pyrexia [Recovered/Resolved]
  - Respiratory arrest [Recovered/Resolved]

NARRATIVE: CASE EVENT DATE: 20121213
